FAERS Safety Report 6303092-8 (Version None)
Quarter: 2009Q3

REPORT INFORMATION
  Report Type: 
  Country: None (occurrence: None)
  Receive Date: 20090810
  Receipt Date: 20090726
  Transmission Date: 20100115
  Serious: Yes (Other)
  Sender: FDA-Public Use
  Company Number: GB-ROCHE-647631

PATIENT
  Age: 20 Year
  Sex: Female

DRUGS (2)
  1. TAMIFLU [Suspect]
     Indication: AVIAN INFLUENZA
     Route: 065
     Dates: start: 20090618, end: 20090619
  2. PENICILLIN [Concomitant]

REACTIONS (6)
  - DECREASED APPETITE [None]
  - DIARRHOEA [None]
  - DISORIENTATION [None]
  - INSOMNIA [None]
  - NAUSEA [None]
  - VOMITING [None]
